FAERS Safety Report 9812128 (Version 1)
Quarter: 2014Q1

REPORT INFORMATION
  Report Type: Report from Study
  Country: DE (occurrence: DE)
  Receive Date: 20140111
  Receipt Date: 20140111
  Transmission Date: 20141002
  Serious: Yes (Other)
  Sender: FDA-Public Use
  Company Number: DE-ROCHE-1331987

PATIENT
  Age: 61 Year
  Sex: Female

DRUGS (3)
  1. AVASTIN [Suspect]
     Indication: OVARIAN CANCER
     Route: 065
     Dates: start: 20121115, end: 20130411
  2. CARBOPLATIN [Concomitant]
     Indication: OVARIAN CANCER
     Dosage: SIX CYCLES WERE GIVEN
     Route: 065
     Dates: start: 20121025, end: 20130207
  3. PACLITAXEL [Concomitant]
     Indication: OVARIAN CANCER
     Dosage: SIX CYCLES WERE GIVEN
     Route: 065
     Dates: start: 20121025, end: 20130207

REACTIONS (1)
  - Depression [Unknown]
